FAERS Safety Report 5884974-8 (Version None)
Quarter: 2008Q3

REPORT INFORMATION
  Report Type: 
  Country: None (occurrence: None)
  Receive Date: 20080916
  Receipt Date: 20080915
  Transmission Date: 20090109
  Serious: Yes (Other)
  Sender: FDA-Public Use
  Company Number: D0058734A

PATIENT
  Age: 30 Year
  Sex: Female
  Weight: 55 kg

DRUGS (3)
  1. AUGMENTIN '125' [Suspect]
     Route: 065
  2. NEUROCIL [Suspect]
     Dosage: 600MG SINGLE DOSE
     Route: 065
  3. ALCOHOL [Suspect]
     Route: 065

REACTIONS (3)
  - BLOOD PRESSURE SYSTOLIC DECREASED [None]
  - SUICIDE ATTEMPT [None]
  - TACHYCARDIA [None]
